FAERS Safety Report 9674567 (Version 1)
Quarter: 2013Q4

REPORT INFORMATION
  Report Type: Spontaneous
  Country: US (occurrence: None)
  Receive Date: 20131106
  Receipt Date: 20131106
  Transmission Date: 20140711
  Serious: Yes (Hospitalization)
  Sender: FDA-Public Use
  Company Number: None

PATIENT
  Sex: Female

DRUGS (10)
  1. GABAPENTIN [Suspect]
     Indication: NEUROPATHY PERIPHERAL
     Dosage: 3 CAPSULES AT BEDTIME
     Route: 048
     Dates: start: 20100921, end: 201205
  2. MULTIVITAMIN [Concomitant]
  3. OMEGA 3 [Concomitant]
  4. ALPHA LIPOIC ACID [Concomitant]
  5. CALCIUM [Concomitant]
  6. MAGNESIUM [Concomitant]
  7. VIT. D [Concomitant]
  8. B COMPLEX [Concomitant]
  9. GLUCOSAMINE [Concomitant]
  10. MSM COMPLEX [Concomitant]

REACTIONS (1)
  - Gastrooesophageal reflux disease [None]
